FAERS Safety Report 6137933-4 (Version None)
Quarter: 2009Q1

REPORT INFORMATION
  Report Type: 
  Country: None (occurrence: None)
  Receive Date: 20090331
  Receipt Date: 20090319
  Transmission Date: 20090719
  Serious: Yes (Other)
  Sender: FDA-Public Use
  Company Number: JP-PFIZER INC-2009182793

PATIENT

DRUGS (10)
  1. SELARA [Suspect]
     Indication: HYPERTENSION
     Dosage: UNK
     Route: 048
     Dates: start: 20080501
  2. ADALAT CC [Concomitant]
     Dosage: UNK
     Route: 048
  3. ADALAT [Concomitant]
     Dosage: UNK
     Route: 048
  4. LOSARTAN POTASSIUM [Concomitant]
     Dosage: UNK
     Route: 048
  5. CARDENALIN [Concomitant]
     Dosage: UNK
     Route: 048
  6. ACTOS [Concomitant]
     Indication: DIABETES MELLITUS
     Dosage: UNK
     Route: 048
  7. BASEN [Concomitant]
     Indication: DIABETES MELLITUS
     Dosage: UNK
     Route: 048
  8. EUGLUCON [Concomitant]
     Indication: DIABETES MELLITUS
     Dosage: UNK
     Route: 048
  9. FERROMIA [Concomitant]
     Dosage: UNK
     Route: 048
  10. LIVALO [Concomitant]
     Indication: HYPERLIPIDAEMIA
     Dosage: UNK
     Route: 048

REACTIONS (2)
  - FEMORAL NECK FRACTURE [None]
  - HYPERKALAEMIA [None]
